FAERS Safety Report 25694286 (Version 1)
Quarter: 2025Q3

REPORT INFORMATION
  Report Type: Spontaneous
  Country: MX (occurrence: MX)
  Receive Date: 20250818
  Receipt Date: 20250818
  Transmission Date: 20251020
  Serious: Yes (Other)
  Sender: ALEXION PHARMACEUTICALS
  Company Number: MX-AstraZeneca-CH-00931317A

PATIENT
  Sex: Female
  Weight: 65 kg

DRUGS (4)
  1. DAPAGLIFLOZIN [Suspect]
     Active Substance: DAPAGLIFLOZIN
     Indication: Glucose tolerance impaired
     Dosage: 10 MILLIGRAM, QD
     Route: 065
     Dates: start: 201903
  2. LEVOTHYROXINE SODIUM [Concomitant]
     Active Substance: LEVOTHYROXINE SODIUM
     Indication: Hypothyroidism
     Route: 065
  3. Dimefor [Concomitant]
     Route: 065
  4. Enaladil [Concomitant]
     Indication: Hypertension
     Route: 065

REACTIONS (2)
  - Off label use [Unknown]
  - Hypothyroidism [Unknown]
